FAERS Safety Report 26100035 (Version 2)
Quarter: 2025Q4

REPORT INFORMATION
  Report Type: Spontaneous
  Country: EU (occurrence: EU)
  Receive Date: 20251128
  Receipt Date: 20251226
  Transmission Date: 20260117
  Serious: Yes (Other)
  Sender: ROCHE
  Company Number: EU-ROCHE-10000440527

PATIENT
  Age: 68 Year
  Sex: Female

DRUGS (5)
  1. FARICIMAB [Suspect]
     Active Substance: FARICIMAB
     Indication: Age-related macular degeneration
  2. FARICIMAB [Suspect]
     Active Substance: FARICIMAB
     Indication: Retinal neovascularisation
  3. FARICIMAB [Suspect]
     Active Substance: FARICIMAB
  4. FARICIMAB [Suspect]
     Active Substance: FARICIMAB
  5. FARICIMAB [Suspect]
     Active Substance: FARICIMAB

REACTIONS (3)
  - Retinal oedema [Recovering/Resolving]
  - Retinal cyst [Recovering/Resolving]
  - Detachment of retinal pigment epithelium [Recovering/Resolving]

NARRATIVE: CASE EVENT DATE: 20250716
